FAERS Safety Report 16761148 (Version 1)
Quarter: 2019Q3

REPORT INFORMATION
  Report Type: Spontaneous
  Country: US (occurrence: US)
  Receive Date: 20190830
  Receipt Date: 20190830
  Transmission Date: 20191005
  Serious: Yes (Other)
  Sender: FDA-Public Use
  Company Number: US-ANIPHARMA-2019-US-001859

PATIENT
  Age: 62 Year
  Sex: Female
  Weight: 117.94 kg

DRUGS (2)
  1. AROMASIN [Suspect]
     Active Substance: EXEMESTANE
     Dosage: 25MG TABLET BY MOUTH ONCE DAILY IN THE MORNING
     Route: 048
     Dates: start: 2016, end: 20170815
  2. ANASTROZOLE. [Suspect]
     Active Substance: ANASTROZOLE
     Indication: BREAST CANCER
     Dosage: 10MG BY MOUTH DAILY IN THE MORNINGS
     Route: 048
     Dates: start: 2011, end: 2016

REACTIONS (3)
  - Drug ineffective [Unknown]
  - Disease recurrence [Unknown]
  - Intentional product misuse [Unknown]

NARRATIVE: CASE EVENT DATE: 2016
